FAERS Safety Report 18972809 (Version 1)
Quarter: 2021Q1

REPORT INFORMATION
  Report Type: Spontaneous
  Country: US (occurrence: US)
  Receive Date: 20210305
  Receipt Date: 20210305
  Transmission Date: 20210420
  Serious: Yes (Other)
  Sender: FDA-Public Use
  Company Number: None

PATIENT
  Age: 47 Year
  Sex: Female
  Weight: 65.25 kg

DRUGS (7)
  1. NAPROXEN. [Concomitant]
     Active Substance: NAPROXEN
  2. LAMOTRIGINE 100 [Suspect]
     Active Substance: LAMOTRIGINE
     Indication: BIPOLAR I DISORDER
     Dosage: ?          QUANTITY:1 TABLET(S);?
     Route: 048
     Dates: start: 20210127, end: 20210303
  3. LAMOTRIGINE 200MG TABLETS [Concomitant]
     Active Substance: LAMOTRIGINE
     Dosage: ?          QUANTITY:1 TABLET(S);?
     Route: 048
     Dates: start: 20210127, end: 20210303
  4. VITAMIN D DAILY + B12 ALTERNATING [Concomitant]
  5. CLARITIN?D NOS [Concomitant]
     Active Substance: LORATADINE\PSEUDOEPHEDRINE SULFATE
  6. PRILOSEC [Concomitant]
     Active Substance: OMEPRAZOLE MAGNESIUM
  7. CLONAPIN [Concomitant]
     Active Substance: CLONAZEPAM

REACTIONS (9)
  - Hypoaesthesia [None]
  - Fatigue [None]
  - Withdrawal syndrome [None]
  - Coordination abnormal [None]
  - Negative thoughts [None]
  - Weight increased [None]
  - Depressed mood [None]
  - Product substitution issue [None]
  - Paraesthesia [None]

NARRATIVE: CASE EVENT DATE: 20210126
